FAERS Safety Report 14926517 (Version 1)
Quarter: 2018Q2

REPORT INFORMATION
  Report Type: Spontaneous
  Country: AU (occurrence: AU)
  Receive Date: 20180523
  Receipt Date: 20180523
  Transmission Date: 20180711
  Serious: Yes (Other)
  Sender: FDA-Public Use
  Company Number: AU-ROCHE-2125971

PATIENT
  Sex: Female

DRUGS (1)
  1. TOCILIZUMAB. [Suspect]
     Active Substance: TOCILIZUMAB
     Indication: TAKAYASU^S ARTERITIS
     Route: 065

REACTIONS (4)
  - Abortion spontaneous [Unknown]
  - Intentional product use issue [Unknown]
  - Maternal exposure during pregnancy [Unknown]
  - Off label use [Unknown]
